FAERS Safety Report 14280074 (Version 3)
Quarter: 2018Q3

REPORT INFORMATION
  Report Type: Spontaneous
  Country: JP (occurrence: JP)
  Receive Date: 20171213
  Receipt Date: 20180703
  Transmission Date: 20181010
  Serious: Yes (Hospitalization, Other)
  Sender: FDA-Public Use
  Company Number: JP-009507513-1712JPN000850J

PATIENT
  Age: 87 Year
  Sex: Male
  Weight: 53 kg

DRUGS (1)
  1. KEYTRUDA [Suspect]
     Active Substance: PEMBROLIZUMAB
     Indication: LUNG ADENOCARCINOMA STAGE I
     Dosage: 200 MG, Q3W
     Route: 041
     Dates: start: 20170904, end: 20171129

REACTIONS (4)
  - Hypothyroidism [Recovered/Resolved]
  - Myositis [Not Recovered/Not Resolved]
  - Interstitial lung disease [Recovering/Resolving]
  - Rhabdomyolysis [Recovered/Resolved]

NARRATIVE: CASE EVENT DATE: 20171125
